FAERS Safety Report 8480932-8 (Version None)
Quarter: 2012Q2

REPORT INFORMATION
  Report Type: 
  Country: None (occurrence: None)
  Receive Date: 20120627
  Receipt Date: 20120522
  Transmission Date: 20120825
  Serious: Yes (Hospitalization, Other)
  Sender: FDA-Public Use
  Company Number: US-ACCORD-013587

PATIENT
  Age: 64 Year
  Sex: Female
  Weight: 60 kg

DRUGS (32)
  1. BENADRYL [Concomitant]
     Dosage: ONGOING
     Dates: start: 20100513
  2. INVESTIGATIONAL DRUG [Suspect]
     Indication: BREAST CANCER STAGE IV
     Route: 042
     Dates: start: 20120403, end: 20120410
  3. LEUKINE [Concomitant]
     Dosage: ONGOING
     Dates: start: 20100803
  4. ACETAMINOPHEN [Concomitant]
  5. IMODIUM [Concomitant]
  6. DEXAMETHASONE [Concomitant]
     Dates: start: 20100707
  7. SOLU-MEDROL [Concomitant]
     Dosage: ONGOING
     Dates: start: 20100513
  8. COUMADIN [Concomitant]
  9. TOPROL-XL [Concomitant]
  10. MAXZIDE [Concomitant]
  11. VICODIN [Concomitant]
     Dates: start: 20110410
  12. DOCETAXEL [Suspect]
     Indication: BREAST CANCER STAGE IV
     Route: 042
     Dates: start: 20120403, end: 20120403
  13. COMPAZINE [Concomitant]
  14. PAXIL [Concomitant]
     Dosage: ONGOING
     Dates: start: 20100316
  15. JANTOVEN [Concomitant]
     Dosage: ONGOING
     Dates: start: 20110624
  16. LOPERAMIDE [Concomitant]
     Dosage: ONGOING
     Dates: start: 20110331
  17. ACETAMINOPHEN [Concomitant]
     Dates: start: 20110331
  18. PREDNISOLONE ACETATE [Concomitant]
     Dates: start: 20100316
  19. DUONEB [Concomitant]
     Dates: start: 20100811
  20. ZANTAC [Concomitant]
  21. METOCLOPRAMIDE [Concomitant]
     Dosage: ONGOING
     Dates: start: 20110602
  22. ALOXI [Concomitant]
     Dosage: ONGOING
     Dates: start: 20100608
  23. PROCARDIA XL [Concomitant]
     Dosage: ONOING
     Dates: start: 20100608
  24. PROMETHAZINE [Concomitant]
     Dosage: ONGOING
     Dates: start: 20110108
  25. METOPROLOL SUCCINATE [Concomitant]
     Dosage: ONGOING
     Dates: start: 20100608
  26. TRIAMTERENE AND HYDROCHLOROTHIAZIDE [Concomitant]
     Dates: start: 20120110
  27. PHENERGAN HCL [Concomitant]
  28. KEFLEX [Concomitant]
     Dates: start: 20120311
  29. PROCRIT [Concomitant]
     Dates: start: 20110215
  30. XANAX [Concomitant]
     Dosage: ONGOING
     Dates: start: 20110119
  31. DECADRON [Concomitant]
     Dosage: ONGOING
     Dates: start: 20100608
  32. PROCHLORPERAZINE MALEATE [Concomitant]
     Dosage: ONGOING
     Dates: start: 20110106

REACTIONS (3)
  - CLOSTRIDIUM DIFFICILE COLITIS [None]
  - PNEUMONIA [None]
  - DEHYDRATION [None]
